FAERS Safety Report 10279372 (Version 2)
Quarter: 2014Q3

REPORT INFORMATION
  Report Type: Spontaneous
  Country: FR (occurrence: FR)
  Receive Date: 20140707
  Receipt Date: 20140707
  Transmission Date: 20150326
  Serious: Yes (Hospitalization)
  Sender: FDA-Public Use
  Company Number: FR-ROCHE-1396324

PATIENT
  Age: 61 Year
  Sex: Female

DRUGS (6)
  1. ROFERON-A [Suspect]
     Active Substance: INTERFERON ALFA-2A
     Indication: BEHCET^S SYNDROME
     Route: 058
     Dates: start: 201312
  2. FLUOXETINE [Concomitant]
     Active Substance: FLUOXETINE\FLUOXETINE HYDROCHLORIDE
     Indication: BEHCET^S SYNDROME
     Route: 048
     Dates: start: 201206
  3. ROFERON-A [Suspect]
     Active Substance: INTERFERON ALFA-2A
     Indication: MULTIPLE SCLEROSIS
  4. CORTANCYL [Concomitant]
     Active Substance: PREDNISONE
     Indication: BEHCET^S SYNDROME
     Route: 048
     Dates: start: 201201
  5. COLCHICINE. [Concomitant]
     Active Substance: COLCHICINE
     Indication: BEHCET^S SYNDROME
     Route: 048
     Dates: start: 201201
  6. TEGRETOL [Concomitant]
     Active Substance: CARBAMAZEPINE
     Indication: BEHCET^S SYNDROME
     Dosage: 200 TWICE A DAY
     Route: 048
     Dates: start: 2000

REACTIONS (4)
  - Dehydration [Not Recovered/Not Resolved]
  - Off label use [Unknown]
  - Headache [Not Recovered/Not Resolved]
  - Somnolence [Not Recovered/Not Resolved]

NARRATIVE: CASE EVENT DATE: 201312
